FAERS Safety Report 4812149-X (Version None)
Quarter: 2005Q4

REPORT INFORMATION
  Report Type: 
  Country: None (occurrence: None)
  Receive Date: 20051026
  Receipt Date: 20051014
  Transmission Date: 20060501
  Serious: Yes (Death, Disabling)
  Sender: FDA-Public Use
  Company Number: 2005JP001833

PATIENT
  Age: 18 Month
  Sex: Male
  Weight: 9.3 kg

DRUGS (4)
  1. PROGRAF [Suspect]
     Indication: BONE MARROW TRANSPLANT
     Dosage: IV NOS
     Route: 042
     Dates: end: 20050201
  2. FLUDARABINE PHOSPHATE [Concomitant]
  3. ALKERAN (MELPHALAN) INJECTION [Concomitant]
  4. PREDNISOLONE (PREDNISOLONE) INJECTION [Concomitant]

REACTIONS (11)
  - BLOOD STEM CELL TRANSPLANT FAILURE [None]
  - CULTURE THROAT POSITIVE [None]
  - DEPRESSED LEVEL OF CONSCIOUSNESS [None]
  - ENTEROBACTER INFECTION [None]
  - HAEMODIALYSIS [None]
  - INTRAVENTRICULAR HAEMORRHAGE [None]
  - MULTI-ORGAN FAILURE [None]
  - PSEUDOMONAS INFECTION [None]
  - RENAL FAILURE [None]
  - RENAL FAILURE ACUTE [None]
  - SEPSIS [None]
